FAERS Safety Report 7481381-1 (Version None)
Quarter: 2011Q2

REPORT INFORMATION
  Report Type: 
  Country: None (occurrence: None)
  Receive Date: 20110516
  Receipt Date: 20110506
  Transmission Date: 20111010
  Serious: No
  Sender: FDA-Public Use
  Company Number: UA-EISAI INC-E3810-04663-SPO-UA

PATIENT
  Sex: Female
  Weight: 60 kg

DRUGS (3)
  1. RABEPRAZOLE SODIUM [Suspect]
     Indication: GASTRITIS
     Route: 048
     Dates: start: 20110504, end: 20110504
  2. SUCRALFATUM [Concomitant]
     Dates: start: 20110425, end: 20110504
  3. BIFI-FORM [Concomitant]
     Indication: DISBACTERIOSIS
     Route: 048
     Dates: start: 20110504

REACTIONS (6)
  - DIARRHOEA [None]
  - TREMOR [None]
  - HYPERTENSION [None]
  - HYPOAESTHESIA [None]
  - HEART RATE INCREASED [None]
  - PYREXIA [None]
